FAERS Safety Report 9932724 (Version 1)
Quarter: 2014Q1

REPORT INFORMATION
  Report Type: Spontaneous
  Country: US (occurrence: None)
  Receive Date: 20140227
  Receipt Date: 20140227
  Transmission Date: 20141002
  Serious: Yes (Other)
  Sender: FDA-Public Use
  Company Number: None

PATIENT
  Age: 56 Year
  Sex: Female
  Weight: 68.04 kg

DRUGS (5)
  1. XARELTO [Suspect]
     Indication: PULMONARY EMBOLISM
     Route: 048
     Dates: start: 20140130, end: 20140218
  2. BIOTIN [Concomitant]
  3. LOVASTATIN [Concomitant]
  4. UBIDECARENONE (COENZYME Q10) [Concomitant]
  5. SUPER B COMPLEX [Concomitant]

REACTIONS (1)
  - Alopecia [None]
